FAERS Safety Report 5193779-5 (Version None)
Quarter: 2006Q4

REPORT INFORMATION
  Report Type: 
  Country: None (occurrence: None)
  Receive Date: 20061221
  Receipt Date: 20061208
  Transmission Date: 20070319
  Serious: Yes (Hospitalization)
  Sender: FDA-Public Use
  Company Number: 231612

PATIENT
  Age: 80 Year
  Sex: Male

DRUGS (7)
  1. RANIBIZUMAB(RANIBIZUMAB) PWDR + SOLVENT,INJECTION SOLN [Suspect]
     Indication: MACULAR DEGENERATION
     Dosage: UNK, UNK, INTRAVITREAL
     Dates: start: 20060504
  2. PLAVIX [Concomitant]
  3. TOPROL-XL [Concomitant]
  4. ASPIRIN [Concomitant]
  5. PRAVACHOL [Concomitant]
  6. DIOVAN [Concomitant]
  7. METAMUCIL (PSYLLIUM HUSK) [Concomitant]

REACTIONS (8)
  - ARTERIAL OCCLUSIVE DISEASE [None]
  - FEMORAL ARTERY OCCLUSION [None]
  - GROIN INFECTION [None]
  - INTERVERTEBRAL DISC DEGENERATION [None]
  - NUCLEAR MAGNETIC RESONANCE IMAGING ABNORMAL [None]
  - PAIN IN EXTREMITY [None]
  - PERIPHERAL ARTERIAL OCCLUSIVE DISEASE [None]
  - POSTOPERATIVE WOUND INFECTION [None]
